FAERS Safety Report 4831417-9 (Version None)
Quarter: 2005Q4

REPORT INFORMATION
  Report Type: 
  Country: None (occurrence: None)
  Receive Date: 20051118
  Receipt Date: 20051116
  Transmission Date: 20060501
  Serious: Yes (Other)
  Sender: FDA-Public Use
  Company Number: US-GLAXOSMITHKLINE-A0582507A

PATIENT
  Age: 57 Year
  Sex: Male

DRUGS (1)
  1. CONTAC [Suspect]
     Indication: NASOPHARYNGITIS
     Dosage: 1CAPL SINGLE DOSE
     Route: 048
     Dates: start: 20051101, end: 20051101

REACTIONS (5)
  - DIZZINESS [None]
  - PHOTOPSIA [None]
  - VISION BLURRED [None]
  - VISUAL ACUITY REDUCED [None]
  - VISUAL DISTURBANCE [None]
